FAERS Safety Report 4980754-6 (Version None)
Quarter: 2006Q2

REPORT INFORMATION
  Report Type: 
  Country: None (occurrence: None)
  Receive Date: 20060424
  Receipt Date: 20050824
  Transmission Date: 20061013
  Serious: Yes (Hospitalization)
  Sender: FDA-Public Use
  Company Number: US-MERCK-0508USA04128

PATIENT
  Age: 72 Year
  Sex: Female
  Weight: 75 kg

DRUGS (1)
  1. VIOXX [Suspect]
     Indication: ARTHRITIS
     Route: 048
     Dates: start: 20000426, end: 20030101

REACTIONS (13)
  - ACUTE MYOCARDIAL INFARCTION [None]
  - ANXIETY [None]
  - CHEST PAIN [None]
  - CORONARY ARTERY OCCLUSION [None]
  - DYSLIPIDAEMIA [None]
  - EMOTIONAL DISTRESS [None]
  - FEAR [None]
  - HIGH DENSITY LIPOPROTEIN DECREASED [None]
  - INJURY [None]
  - LOW DENSITY LIPOPROTEIN INCREASED [None]
  - MYOCARDIAL INFARCTION [None]
  - PAIN [None]
  - VENTRICULAR FAILURE [None]
